FAERS Safety Report 7588914-5 (Version None)
Quarter: 2011Q3

REPORT INFORMATION
  Report Type: 
  Country: None (occurrence: None)
  Receive Date: 20110705
  Receipt Date: 20110627
  Transmission Date: 20111222
  Serious: Yes (Hospitalization)
  Sender: FDA-Public Use
  Company Number: IT-JNJFOC-20110612328

PATIENT
  Sex: Male

DRUGS (3)
  1. ELOPRAM [Concomitant]
     Indication: ILL-DEFINED DISORDER
     Route: 065
  2. HALDOL [Suspect]
     Indication: PSYCHOTIC DISORDER
     Dosage: 10 MG/ ML DROPS, 11 DROPS A DAY
     Route: 048
     Dates: start: 20110521, end: 20110621
  3. CLONAZEPAM [Concomitant]
     Indication: ILL-DEFINED DISORDER
     Route: 065

REACTIONS (4)
  - DYSTONIA [None]
  - DYSPNOEA [None]
  - ANXIETY [None]
  - SWOLLEN TONGUE [None]
